FAERS Safety Report 8112205-7 (Version None)
Quarter: 2012Q1

REPORT INFORMATION
  Report Type: 
  Country: None (occurrence: None)
  Receive Date: 20120202
  Receipt Date: 20120202
  Transmission Date: 20120608
  Serious: Yes (Hospitalization)
  Sender: FDA-Public Use
  Company Number: None

PATIENT
  Sex: Male

DRUGS (1)
  1. IRON DEXTRAN [Suspect]
     Dosage: UNKNOWN UNKNOWN IV 042
     Route: 042
     Dates: start: 20110211

REACTIONS (6)
  - DYSPNOEA [None]
  - CHEST PAIN [None]
  - FLUSHING [None]
  - INFUSION RELATED REACTION [None]
  - FLANK PAIN [None]
  - HYPOTENSION [None]
